FAERS Safety Report 6821475-4 (Version None)
Quarter: 2010Q3

REPORT INFORMATION
  Report Type: 
  Country: None (occurrence: None)
  Receive Date: 20100707
  Receipt Date: 20080919
  Transmission Date: 20110219
  Serious: No
  Sender: FDA-Public Use
  Company Number: US-PFIZER INC-2008079300

PATIENT
  Sex: Male
  Weight: 69.545 kg

DRUGS (1)
  1. ZOLOFT [Suspect]
     Indication: ANXIETY DISORDER
     Route: 048
     Dates: start: 20080826

REACTIONS (2)
  - FATIGUE [None]
  - SOMNOLENCE [None]
